FAERS Safety Report 12214415 (Version 5)
Quarter: 2016Q3

REPORT INFORMATION
  Report Type: Report from Study
  Country: AR (occurrence: AR)
  Receive Date: 20160328
  Receipt Date: 20160912
  Transmission Date: 20161109
  Serious: Yes (Other)
  Sender: FDA-Public Use
  Company Number: PHHY2015AR079121

PATIENT
  Age: 59 Year
  Sex: Female

DRUGS (4)
  1. AFINITOR [Suspect]
     Active Substance: EVEROLIMUS
     Dosage: 5 MG, UNK
     Route: 065
     Dates: start: 20150614
  2. SANDOSTATIN LAR DEPOT [Suspect]
     Active Substance: OCTREOTIDE ACETATE
     Indication: NEUROENDOCRINE CARCINOMA METASTATIC
     Dosage: 30 MG, QMO
     Route: 065
     Dates: start: 201411
  3. RIVOTRIL [Concomitant]
     Active Substance: CLONAZEPAM
     Indication: PRODUCT USED FOR UNKNOWN INDICATION
     Route: 065
  4. AFINITOR [Suspect]
     Active Substance: EVEROLIMUS
     Indication: NEUROENDOCRINE CARCINOMA METASTATIC
     Dosage: 10 MG, UNK
     Route: 065

REACTIONS (22)
  - Nasal inflammation [Recovering/Resolving]
  - Rhinalgia [Recovering/Resolving]
  - Malaise [Recovering/Resolving]
  - Papule [Unknown]
  - Constipation [Unknown]
  - Skin exfoliation [Not Recovered/Not Resolved]
  - Nail disorder [Recovered/Resolved]
  - Chest discomfort [Unknown]
  - Pyrexia [Not Recovered/Not Resolved]
  - Liver induration [Unknown]
  - Muscle contracture [Unknown]
  - Peripheral swelling [Not Recovered/Not Resolved]
  - Abdominal distension [Recovered/Resolved]
  - Abdominal discomfort [Recovering/Resolving]
  - Anaemia [Not Recovered/Not Resolved]
  - Stomatitis [Recovered/Resolved]
  - Hordeolum [Recovered/Resolved]
  - Arthralgia [Not Recovered/Not Resolved]
  - Dry eye [Unknown]
  - Skin mass [Recovered/Resolved]
  - Headache [Unknown]
  - Flatulence [Recovered/Resolved]

NARRATIVE: CASE EVENT DATE: 201510
